FAERS Safety Report 9367664 (Version 1)
Quarter: 2013Q2

REPORT INFORMATION
  Report Type: Spontaneous
  Country: NO (occurrence: NO)
  Receive Date: 20130625
  Receipt Date: 20130625
  Transmission Date: 20140414
  Serious: Yes (Hospitalization)
  Sender: FDA-Public Use
  Company Number: NO-B.I. PHARMACEUTICALS,INC./RIDGEFIELD-2013-SW-00334NO

PATIENT
  Age: 62 Year
  Sex: Female

DRUGS (8)
  1. PRADAXA [Suspect]
     Indication: ATRIAL FIBRILLATION
     Dosage: 300 MG
     Route: 048
     Dates: start: 20130508, end: 20130601
  2. ATACAND [Concomitant]
     Dosage: 8 MG
     Route: 048
  3. ALBYL-E [Concomitant]
     Dates: end: 20130508
  4. SIMVASTATIN [Concomitant]
     Dosage: 10 MG
     Route: 048
  5. FUROSEMIDE [Concomitant]
     Dosage: 40 MG
     Route: 048
  6. SELO-ZOK [Concomitant]
     Indication: ATRIAL FIBRILLATION
     Dosage: 100 MG
     Route: 048
     Dates: start: 20130508
  7. ISOPTIN RETARD [Concomitant]
     Indication: ATRIAL FIBRILLATION
     Dosage: 120 MG
     Route: 048
     Dates: start: 20130508
  8. CORDARONE [Concomitant]
     Indication: ATRIAL FIBRILLATION
     Dosage: 400 MG
     Route: 048
     Dates: start: 201306

REACTIONS (2)
  - Peripheral artery thrombosis [Recovered/Resolved]
  - Treatment failure [Recovered/Resolved]
